FAERS Safety Report 5322868-7 (Version None)
Quarter: 2007Q2

REPORT INFORMATION
  Report Type: 
  Country: None (occurrence: None)
  Receive Date: 20070511
  Receipt Date: 20070507
  Transmission Date: 20071010
  Serious: Yes (Other)
  Sender: FDA-Public Use
  Company Number: US-PFIZER INC-2007036232

PATIENT
  Sex: Male
  Weight: 71.7 kg

DRUGS (3)
  1. CELEBREX [Suspect]
     Indication: ARTHRITIS
  2. LIPITOR [Concomitant]
  3. DRUG, UNSPECIFIED [Concomitant]

REACTIONS (2)
  - RENAL DISORDER [None]
  - RENAL IMPAIRMENT [None]
